FAERS Safety Report 6287674-8 (Version None)
Quarter: 2009Q3

REPORT INFORMATION
  Report Type: 
  Country: None (occurrence: None)
  Receive Date: 20090727
  Receipt Date: 20090727
  Transmission Date: 20100115
  Serious: Yes (Other)
  Sender: FDA-Public Use
  Company Number: None

PATIENT
  Age: 58 Year
  Sex: Female
  Weight: 72.5755 kg

DRUGS (2)
  1. ARMOUR THYROID 1.5 GRAIN FOREST PHARMACEUTICALS [Suspect]
     Indication: HYPOTHYROIDISM
     Dosage: 3 GRAINS, DAILY, SL
     Route: 060
     Dates: start: 20090215, end: 20090228
  2. ARMOUR THYROID 2 GRAIN FOREST PHARMACEUTICALS [Suspect]
     Indication: HYPOTHYROIDISM
     Dates: start: 20090215, end: 20090228

REACTIONS (3)
  - DRUG INEFFECTIVE [None]
  - LETHARGY [None]
  - PRODUCT QUALITY ISSUE [None]
